FAERS Safety Report 6638505-5 (Version None)
Quarter: 2010Q1

REPORT INFORMATION
  Report Type: 
  Country: None (occurrence: None)
  Receive Date: 20100317
  Receipt Date: 20100305
  Transmission Date: 20100710
  Serious: Yes (Other)
  Sender: FDA-Public Use
  Company Number: US-ELI_LILLY_AND_COMPANY-US200906000834

PATIENT
  Sex: Female
  Weight: 93.424 kg

DRUGS (17)
  1. BYETTA [Suspect]
     Dosage: 5 UG, 2/D
     Route: 058
     Dates: start: 20060501, end: 20060601
  2. METFORMIN HCL [Concomitant]
  3. AMBIEN CR [Concomitant]
  4. STRATTERA [Concomitant]
  5. CELEBREX [Concomitant]
  6. INSULIN [Concomitant]
  7. CORTAL [Concomitant]
  8. ZOLOFT [Concomitant]
  9. SERTRALINE HCL [Concomitant]
  10. ESTRADIOL [Concomitant]
  11. SIMVASTATIN [Concomitant]
  12. LYRICA [Concomitant]
  13. SYNTHROID [Concomitant]
  14. SPIRONOLACTONE [Concomitant]
  15. LOVAZA [Concomitant]
  16. CYMBALTA [Concomitant]
  17. CHLORTHALIDONE [Concomitant]

REACTIONS (11)
  - ABDOMINAL PAIN [None]
  - BRADYCARDIA [None]
  - CARDIAC PACEMAKER INSERTION [None]
  - COSTOCHONDRITIS [None]
  - GASTROENTERITIS [None]
  - JOINT SPRAIN [None]
  - LIGAMENT RUPTURE [None]
  - LOSS OF CONSCIOUSNESS [None]
  - PANCREATITIS [None]
  - PANCREATITIS CHRONIC [None]
  - SYNCOPE [None]
